FAERS Safety Report 4733367-5 (Version None)
Quarter: 2005Q3

REPORT INFORMATION
  Report Type: 
  Country: None (occurrence: None)
  Receive Date: 20050801
  Receipt Date: 20050801
  Transmission Date: 20060218
  Serious: Yes (Hospitalization)
  Sender: FDA-Public Use
  Company Number: None

PATIENT
  Age: 73 Year
  Sex: Male

DRUGS (5)
  1. GLYBURIDE [Suspect]
     Indication: DIABETES MELLITUS NON-INSULIN-DEPENDENT
     Dosage: 10 MG BID
     Dates: start: 19960101
  2. IBUPROFEN [Concomitant]
  3. LIPITOR [Concomitant]
  4. FOSINOPRIL SODIUM [Concomitant]
  5. VIAGRA [Concomitant]

REACTIONS (1)
  - HYPOGLYCAEMIA [None]
